FAERS Safety Report 24443754 (Version 2)
Quarter: 2024Q4

REPORT INFORMATION
  Report Type: Report from Study
  Country: US (occurrence: US)
  Receive Date: 20241016
  Receipt Date: 20241017
  Transmission Date: 20250114
  Serious: No
  Sender: ROCHE
  Company Number: US-ROCHE-2106446

PATIENT
  Age: 42 Year
  Sex: Male

DRUGS (6)
  1. RITUXAN [Suspect]
     Active Substance: RITUXIMAB
     Indication: Polymyositis
     Dosage: DAY 1 AND DAY 15?DATE OF LAST INFUSION: 21/JUN/2018, 19/NOV/2023
     Route: 042
  2. RITUXAN [Suspect]
     Active Substance: RITUXIMAB
     Indication: Connective tissue disorder
  3. PROGUANIL [Concomitant]
     Active Substance: PROGUANIL
  4. MYCOPHENOLIC ACID [Concomitant]
     Active Substance: MYCOPHENOLIC ACID
  5. MYCOPHENOLIC ACID [Concomitant]
     Active Substance: MYCOPHENOLIC ACID
     Route: 048
     Dates: start: 20231213
  6. HYDROXYCHLOROQUINE SULFATE [Concomitant]
     Active Substance: HYDROXYCHLOROQUINE SULFATE
     Dosage: FOR 9 DAYS
     Route: 048
     Dates: start: 20231213

REACTIONS (2)
  - Off label use [Unknown]
  - No adverse event [Unknown]
